FAERS Safety Report 6440164-1 (Version None)
Quarter: 2009Q4

REPORT INFORMATION
  Report Type: 
  Country: None (occurrence: None)
  Receive Date: 20091113
  Receipt Date: 20090513
  Transmission Date: 20100525
  Serious: No
  Sender: FDA-Public Use
  Company Number: A0784124A

PATIENT
  Age: 63 Year
  Sex: Female

DRUGS (4)
  1. COREG [Suspect]
     Indication: HYPERTENSION
     Dosage: 12.5MG TWICE PER DAY
     Route: 048
     Dates: start: 20090201, end: 20090201
  2. COREG CR [Suspect]
     Indication: HYPERTENSION
     Dosage: 20MG PER DAY
     Route: 048
     Dates: start: 20080115
  3. XANAX [Concomitant]
  4. VITAMINS [Concomitant]

REACTIONS (3)
  - DEHYDRATION [None]
  - DYSPNOEA [None]
  - INSOMNIA [None]
